FAERS Safety Report 4763660-1 (Version None)
Quarter: 2005Q3

REPORT INFORMATION
  Report Type: 
  Country: None (occurrence: None)
  Receive Date: 20050901
  Receipt Date: 20050426
  Transmission Date: 20060218
  Serious: No
  Sender: FDA-Public Use
  Company Number: 05P-163-0298431-00

PATIENT
  Age: 44 Year
  Sex: Female
  Weight: 75.7507 kg

DRUGS (7)
  1. ULTIVA [Suspect]
     Indication: PAIN
     Dosage: INTRAVENOUS
     Route: 042
     Dates: start: 20050425, end: 20050425
  2. DESFLURANE [Concomitant]
  3. RAMIPRIL [Concomitant]
  4. CLOPIDOGREL BISULFATE [Concomitant]
  5. DIGOXIN [Concomitant]
  6. SPIRONOLACTONE [Concomitant]
  7. ATORVASTATIN CALCIUM [Concomitant]

REACTIONS (2)
  - BLOOD PRESSURE INCREASED [None]
  - DRUG INEFFECTIVE [None]
